FAERS Safety Report 9319366 (Version 2)
Quarter: 2013Q2

REPORT INFORMATION
  Report Type: Spontaneous
  Country: US (occurrence: None)
  Receive Date: 20130524
  Receipt Date: 20130612
  Transmission Date: 20140414
  Serious: Yes (Other)
  Sender: FDA-Public Use
  Company Number: 1723887

PATIENT
  Age: 45 Year
  Sex: Male
  Weight: 100 kg

DRUGS (6)
  1. PRECEDEX [Suspect]
     Indication: SEDATION
     Route: 042
     Dates: start: 20130416, end: 20130418
  2. CEFAZOLIN [Concomitant]
  3. PROPOFOL [Concomitant]
  4. MORPHINE [Concomitant]
  5. PANTOPRAZOLE [Concomitant]
  6. MIDAZOLAM [Concomitant]

REACTIONS (1)
  - Neuroleptic malignant syndrome [None]
